FAERS Safety Report 7250330-3 (Version None)
Quarter: 2011Q1

REPORT INFORMATION
  Report Type: 
  Country: None (occurrence: None)
  Receive Date: 20110121
  Receipt Date: 20110121
  Transmission Date: 20110831
  Serious: No
  Sender: FDA-Public Use
  Company Number: None

PATIENT
  Sex: Female
  Weight: 89.8122 kg

DRUGS (1)
  1. SERTRALINE HCL TAB 100MG SIDE 1: 100 MG; SIDE 2: G 4910 GREENSTONE [Suspect]
     Indication: DEPRESSION
     Dosage: 100 MG DAILY PO
     Route: 048
     Dates: start: 20090101, end: 20110121

REACTIONS (2)
  - ABNORMAL WEIGHT GAIN [None]
  - CONSTIPATION [None]
